FAERS Safety Report 4482061-7 (Version None)
Quarter: 2004Q3

REPORT INFORMATION
  Report Type: 
  Country: None (occurrence: None)
  Receive Date: 20040921
  Receipt Date: 20030722
  Transmission Date: 20050211
  Serious: Yes (Hospitalization)
  Sender: FDA-Public Use
  Company Number: 163-20785-03060800(1)

PATIENT
  Age: 76 Year
  Sex: Male
  Weight: 91.6266 kg

DRUGS (7)
  1. THALOMID [Suspect]
     Indication: PROSTATE CANCER METASTATIC
     Dosage: 400 MG, DAILY, ORAL
     Route: 048
     Dates: start: 20030403, end: 20030528
  2. FELODIPINE [Concomitant]
  3. LOVOTHYROXINE (LEVOTHYROXINE) [Concomitant]
  4. SIMVASTATIN [Concomitant]
  5. ACETYLSALICYLIC ACID SRT [Concomitant]
  6. HYDROCHLORZIDE (HYDROCHLOROTHIAZIDE) [Concomitant]
  7. MISENTRY [Concomitant]

REACTIONS (6)
  - ABDOMINAL DISTENSION [None]
  - CEREBROVASCULAR ACCIDENT [None]
  - HEMIPARESIS [None]
  - MALAISE [None]
  - OEDEMA PERIPHERAL [None]
  - SPEECH DISORDER [None]
